FAERS Safety Report 7439270-4 (Version None)
Quarter: 2011Q2

REPORT INFORMATION
  Report Type: 
  Country: None (occurrence: None)
  Receive Date: 20110427
  Receipt Date: 20081001
  Transmission Date: 20111010
  Serious: Yes (Other)
  Sender: FDA-Public Use
  Company Number: US-BAYER-201040731NA

PATIENT
  Age: 59 Year
  Sex: Male
  Weight: 72.562 kg

DRUGS (9)
  1. TRASYLOL [Suspect]
     Indication: CORONARY REVASCULARISATION
     Dosage: LOADING DOSE 200ML THEN 50ML/HR, PRIME 2,000,000 KIU
     Route: 042
     Dates: start: 20010626, end: 20010626
  2. LIPITOR [Concomitant]
     Dosage: 20 MG, QD
     Route: 048
  3. HYZAAR [Concomitant]
     Dosage: 12.5 MG, QD
     Route: 048
  4. ALBUMIN NOS [Concomitant]
     Route: 042
  5. ACETYLSALICYLIC ACID SRT [Concomitant]
     Dosage: 325 MG, QD
     Route: 048
  6. DOPAMINE HCL [Concomitant]
     Dosage: UNK
     Route: 042
     Dates: start: 20010626
  7. AMICAR [Concomitant]
     Indication: CORONARY REVASCULARISATION
     Dosage: UNK
     Dates: start: 20010626, end: 20010626
  8. HEPARIN [Concomitant]
     Route: 042
  9. MONOPRIL [Concomitant]
     Dosage: 10 MG, QD
     Route: 048

REACTIONS (8)
  - STRESS [None]
  - INJURY [None]
  - ANXIETY [None]
  - CARDIAC FAILURE CONGESTIVE [None]
  - PAIN [None]
  - EMOTIONAL DISTRESS [None]
  - MYOCARDIAL INFARCTION [None]
  - GENERAL PHYSICAL HEALTH DETERIORATION [None]
